FAERS Safety Report 10183794 (Version 1)
Quarter: 2014Q2

REPORT INFORMATION
  Report Type: Spontaneous
  Country: JP (occurrence: JP)
  Receive Date: 20140520
  Receipt Date: 20140520
  Transmission Date: 20141212
  Serious: Yes (Hospitalization)
  Sender: FDA-Public Use
  Company Number: JP-ASTRAZENECA-2014SE33260

PATIENT
  Sex: 0

DRUGS (2)
  1. SYMBICORT TURBUHALER [Suspect]
     Indication: ASTHMA
     Dosage: ONE INHALATION TWICE DAILY
     Route: 055
  2. SYMBICORT TURBUHALER [Suspect]
     Indication: ASTHMA
     Dosage: AS REQUIRED
     Route: 055

REACTIONS (1)
  - Brain neoplasm [Unknown]
